FAERS Safety Report 10633912 (Version 2)
Quarter: 2015Q1

REPORT INFORMATION
  Report Type: Spontaneous
  Country: US (occurrence: None)
  Receive Date: 20141203
  Receipt Date: 20150227
  Transmission Date: 20150720
  Serious: Yes (Other)
  Sender: FDA-Public Use
  Company Number: 2640695

PATIENT
  Age: 64 Year
  Sex: Female
  Weight: 75.1 kg

DRUGS (25)
  1. INVESTIGATIONAL DRUG [Suspect]
     Active Substance: INVESTIGATIONAL PRODUCT
     Indication: ACUTE MYELOID LEUKAEMIA
     Route: 048
     Dates: start: 20140624
  2. DOCUSATE [Concomitant]
     Active Substance: DOCUSATE
  3. VALACICLOVIR HYDROCHLORIDE [Concomitant]
     Active Substance: VALACYCLOVIR HYDROCHLORIDE
  4. PIPERACILLIN [Concomitant]
     Active Substance: PIPERACILLIN
  5. CAPTOPRIL. [Concomitant]
     Active Substance: CAPTOPRIL
  6. FUROSEMIDE. [Concomitant]
     Active Substance: FUROSEMIDE
  7. POTASSIUM CHLORIDE. [Concomitant]
     Active Substance: POTASSIUM CHLORIDE
  8. SEVELAMER [Concomitant]
     Active Substance: SEVELAMER
  9. LACTULOSE. [Concomitant]
     Active Substance: LACTULOSE
  10. PARACETAMOL [Concomitant]
     Active Substance: ACETAMINOPHEN
  11. OXYCODONE [Concomitant]
     Active Substance: OXYCODONE
  12. CHOLECALCIFEROL [Concomitant]
     Active Substance: CHOLECALCIFEROL
  13. LORAZEPAM. [Concomitant]
     Active Substance: LORAZEPAM
  14. MORPHINE [Concomitant]
     Active Substance: MORPHINE
  15. MOXIFLOXACIN [Concomitant]
     Active Substance: MOXIFLOXACIN
  16. MICAFUNGIN [Concomitant]
     Active Substance: MICAFUNGIN
  17. ALLOPURINOL. [Concomitant]
     Active Substance: ALLOPURINOL
  18. CYTARABINE INJECTION (CYTARABINE) [Suspect]
     Active Substance: CYTARABINE
     Indication: ACUTE MYELOID LEUKAEMIA
     Route: 042
     Dates: start: 20140627, end: 20140704
  19. DAUNORUBICIN [Suspect]
     Active Substance: DAUNORUBICIN
     Indication: ACUTE MYELOID LEUKAEMIA
     Dosage: IV BOLUS
     Route: 040
     Dates: start: 20140627, end: 20140629
  20. MEROPENEM. [Suspect]
     Active Substance: MEROPENEM
     Indication: PROPHYLAXIS
     Dosage: NOT OTHERWISE SPECIFIED
     Route: 042
     Dates: start: 20140712
  21. ONDANSETRON [Concomitant]
     Active Substance: ONDANSETRON
  22. PANTOPRAZOLE [Concomitant]
     Active Substance: PANTOPRAZOLE SODIUM
  23. MACROGOL [Concomitant]
     Active Substance: POLYETHYLENE GLYCOLS
  24. SENNA [Concomitant]
     Active Substance: SENNA LEAF\SENNOSIDES\SENNOSIDES A AND B
  25. LOPERAMIDE [Concomitant]
     Active Substance: LOPERAMIDE

REACTIONS (12)
  - Mucosal inflammation [None]
  - Loss of consciousness [None]
  - Pancreatitis acute [None]
  - Hepatic cyst [None]
  - Dyskinesia [None]
  - Upper gastrointestinal haemorrhage [None]
  - Presyncope [None]
  - Duodenitis [None]
  - Atrioventricular block first degree [None]
  - Abdominal pain upper [None]
  - Myoclonus [None]
  - Bone marrow failure [None]

NARRATIVE: CASE EVENT DATE: 20140712
